FAERS Safety Report 8887041 (Version 1)
Quarter: 2012Q4

REPORT INFORMATION
  Report Type: 
  Country: JP (occurrence: JP)
  Receive Date: 20121105
  Receipt Date: 20121105
  Transmission Date: 20130627
  Serious: Yes (Hospitalization, Other)
  Sender: FDA-Public Use
  Company Number: JP-PFIZER INC-2012264925

PATIENT
  Age: 55 Year
  Sex: Female
  Weight: 49 kg

DRUGS (12)
  1. LIPITOR [Suspect]
     Indication: HYPERLIPIDAEMIA
     Dosage: 5 mg, 1x/day
     Route: 048
     Dates: start: 2007, end: 20120509
  2. LOXONIN [Suspect]
     Indication: INFLAMMATION
     Dosage: 60 mg, 3x/day
     Route: 048
     Dates: start: 20120426, end: 20120426
  3. LOXONIN [Suspect]
     Indication: LUMBAGO
     Dosage: UNK, twice daily
     Route: 048
     Dates: start: 20120427, end: 20120427
  4. LOXONIN [Suspect]
     Dosage: 1 tablet after each meal
     Route: 048
     Dates: start: 20120503, end: 20120503
  5. LOXONIN [Suspect]
     Dosage: UNK
     Route: 048
     Dates: end: 20120507
  6. CRAVIT [Suspect]
     Indication: ACUTE UPPER RESPIRATORY TRACT INFLAMMATION
     Dosage: 500 mg, 1x/day
     Route: 048
     Dates: start: 20120426, end: 20120427
  7. CRAVIT [Suspect]
     Indication: INFLAMMATION
     Dosage: 500mg ,UNK
     Route: 048
     Dates: start: 20120503, end: 20120503
  8. CRAVIT [Suspect]
     Dosage: 500mg ,UNK
     Route: 048
     Dates: start: 20120508, end: 20120508
  9. ADALAT CR [Concomitant]
     Indication: HYPERTENSION
     Dosage: UNK
     Dates: start: 2007
  10. MAINTATE [Concomitant]
     Indication: HYPERTENSION
     Dosage: UNK
     Dates: start: 2007
  11. FERO-GRADUMET [Concomitant]
     Indication: IRON DEFICIENCY ANAEMIA
     Dosage: UNK
     Dates: start: 2007, end: 20120509
  12. NORVASC [Concomitant]

REACTIONS (4)
  - Rhabdomyolysis [Recovered/Resolved]
  - Primary hyperaldosteronism [Recovered/Resolved]
  - Back pain [Recovered/Resolved]
  - Upper respiratory tract inflammation [Recovered/Resolved]
